FAERS Safety Report 5120601-5 (Version None)
Quarter: 2006Q4

REPORT INFORMATION
  Report Type: 
  Country: None (occurrence: None)
  Receive Date: 20061002
  Receipt Date: 20060927
  Transmission Date: 20070319
  Serious: Yes (Other)
  Sender: FDA-Public Use
  Company Number: 2006S1000174

PATIENT
  Sex: Male

DRUGS (1)
  1. ACITRETIN [Suspect]
     Indication: MYCOSIS FUNGOIDES
     Dosage: PO
     Route: 048
     Dates: start: 20030101

REACTIONS (4)
  - ABDOMINAL PAIN [None]
  - ANOREXIA [None]
  - GASTRIC HAEMORRHAGE [None]
  - GASTROINTESTINAL PAIN [None]
